FAERS Safety Report 5541199-3 (Version None)
Quarter: 2007Q4

REPORT INFORMATION
  Report Type: 
  Country: None (occurrence: None)
  Receive Date: 20071209
  Receipt Date: 20061220
  Transmission Date: 20080405
  Serious: No
  Sender: FDA-Public Use
  Company Number: US-AMGEN-KDL204444

PATIENT
  Sex: Male

DRUGS (2)
  1. ENBREL [Suspect]
     Indication: SCLERODERMA
     Route: 058
     Dates: start: 20060928
  2. METHOTREXATE [Concomitant]
     Dates: start: 20050601

REACTIONS (2)
  - BENIGN NEOPLASM [None]
  - ROSACEA [None]
